FAERS Safety Report 6208386-2 (Version None)
Quarter: 2009Q2

REPORT INFORMATION
  Report Type: 
  Country: None (occurrence: None)
  Receive Date: 20090529
  Receipt Date: 20090520
  Transmission Date: 20091009
  Serious: Yes (Death)
  Sender: FDA-Public Use
  Company Number: US-BIOGENIDEC-2009BI015286

PATIENT
  Age: 59 Year
  Sex: Male
  Weight: 95 kg

DRUGS (1)
  1. AVONEX [Suspect]
     Indication: MULTIPLE SCLEROSIS
     Route: 030
     Dates: start: 20010101, end: 20020101

REACTIONS (2)
  - DECREASED IMMUNE RESPONSIVENESS [None]
  - MALIGNANT MELANOMA [None]
